FAERS Safety Report 21854747 (Version 1)
Quarter: 2023Q1

REPORT INFORMATION
  Report Type: Report from Study
  Country: US (occurrence: US)
  Receive Date: 20230112
  Receipt Date: 20230112
  Transmission Date: 20230418
  Serious: No
  Sender: FDA-Public Use
  Company Number: US-ABBVIE-4227609

PATIENT
  Sex: Female

DRUGS (15)
  1. RINVOQ [Suspect]
     Active Substance: UPADACITINIB
     Indication: Rheumatoid arthritis
     Dosage: FORM STRENGTH: 15 MILLIGRAM
     Route: 048
     Dates: start: 20220712
  2. MULTI-VITAMIN DAILY [Concomitant]
     Indication: Product used for unknown indication
  3. CALCIUM D3 600MG-12.5 TABLET ER [Concomitant]
     Indication: Product used for unknown indication
  4. MULTIVITAMIN 50 PLUS TABLET [Concomitant]
     Indication: Product used for unknown indication
  5. SYSTANE BALANCE 0.6 % [Concomitant]
     Indication: Product used for unknown indication
  6. HYDROXYCHLOROQUINE SULFATE [Concomitant]
     Active Substance: HYDROXYCHLOROQUINE SULFATE
     Indication: Product used for unknown indication
  7. BENEFIBER 3G/4G [Concomitant]
     Indication: Product used for unknown indication
  8. VITAMIN D3 25 MCG [Concomitant]
     Indication: Product used for unknown indication
  9. LEFLUNOMIDE 20 MG TABLET [Concomitant]
     Indication: Product used for unknown indication
  10. TURMERIC 450MG-5 [Concomitant]
     Indication: Product used for unknown indication
  11. ATORVASTATIN CALCIUM [Concomitant]
     Active Substance: ATORVASTATIN CALCIUM
     Indication: Product used for unknown indication
  12. PFIZIER COVID-19 VACCINE 30 MCG [Concomitant]
     Indication: Product used for unknown indication
  13. OYSTER SHELL CALCIUM 500(125 [Concomitant]
     Indication: Product used for unknown indication
  14. BIOTIN 2500 MC [Concomitant]
     Indication: Product used for unknown indication
  15. METFORMIN HYDROCHLORIDE [Concomitant]
     Active Substance: METFORMIN HYDROCHLORIDE
     Indication: Product used for unknown indication

REACTIONS (2)
  - Upper respiratory tract congestion [Recovered/Resolved]
  - Oropharyngeal pain [Recovered/Resolved]
